FAERS Safety Report 20714173 (Version 1)
Quarter: 2022Q2

REPORT INFORMATION
  Report Type: Spontaneous
  Country: US (occurrence: None)
  Receive Date: 20220415
  Receipt Date: 20220415
  Transmission Date: 20220721
  Serious: Yes (Life-Threatening)
  Sender: FDA-Public Use
  Company Number: None

PATIENT
  Age: 61 Year
  Sex: Female
  Weight: 118 kg

DRUGS (12)
  1. VANCOMYCIN HYDROCHLORIDE [Suspect]
     Active Substance: VANCOMYCIN HYDROCHLORIDE
     Indication: Osteomyelitis
     Dosage: OTHER FREQUENCY : ONCE (LOAD);?
     Route: 041
     Dates: start: 20220405, end: 20220405
  2. Amlodipine 5mg daily [Concomitant]
  3. pantoprazole 40mg daily [Concomitant]
  4. oxycodone 5/APAP 325mg [Concomitant]
  5. losartan 50mg daily [Concomitant]
  6. levothyroxine 175mcg daily [Concomitant]
  7. INSULIN LISPRO [Concomitant]
     Active Substance: INSULIN LISPRO
  8. ATORVASTATIN [Concomitant]
     Active Substance: ATORVASTATIN
  9. chlorthalidone 25mg daily [Concomitant]
  10. atenolol 50mg daily [Concomitant]
  11. KCL ER 20mg daily [Concomitant]
  12. ceftraixone 2000mg IV q24h [Concomitant]
     Dates: start: 20220405

REACTIONS (5)
  - Cardiac arrest [None]
  - Anaphylactic shock [None]
  - Cardio-respiratory arrest [None]
  - Vasoplegia syndrome [None]
  - Bundle branch block left [None]

NARRATIVE: CASE EVENT DATE: 20220405
